FAERS Safety Report 5023925-5 (Version None)
Quarter: 2006Q2

REPORT INFORMATION
  Report Type: 
  Country: None (occurrence: None)
  Receive Date: 20060426
  Receipt Date: 20060222
  Transmission Date: 20061013
  Serious: Yes (Other)
  Sender: FDA-Public Use
  Company Number: 2006026842

PATIENT
  Age: 73 Year
  Sex: Female
  Weight: 54.4316 kg

DRUGS (8)
  1. LYRICA [Suspect]
     Indication: PAIN
     Dosage: 75 MG (75 MG, 1 IN 1 D), ORAL
     Route: 048
     Dates: start: 20050219, end: 20060219
  2. LORTAB [Concomitant]
  3. SOMA [Concomitant]
  4. DITROPAN [Concomitant]
  5. RIBELFAN (AMINOPHENAZONE, NOSCAPINE, QUININE, SULFAMETHOXYPYRIDAZINE) [Concomitant]
  6. ACCUPRIL [Concomitant]
  7. LIPITOR [Concomitant]
  8. LIBRAX [Concomitant]

REACTIONS (1)
  - MALAISE [None]
